FAERS Safety Report 16729064 (Version 3)
Quarter: 2019Q3

REPORT INFORMATION
  Report Type: Spontaneous
  Country: LT (occurrence: LT)
  Receive Date: 20190822
  Receipt Date: 20190905
  Transmission Date: 20191005
  Serious: Yes (Death, Life-Threatening, Hospitalization, Other)
  Sender: FDA-Public Use
  Company Number: PHHY2019LT194491

PATIENT
  Age: 72 Year
  Sex: Male
  Weight: 74 kg

DRUGS (3)
  1. AMPICILLIN [Suspect]
     Active Substance: AMPICILLIN
     Indication: ENDOCARDITIS ENTEROCOCCAL
     Dosage: 2 G, TID
     Route: 042
  2. SULBACTAM [Suspect]
     Active Substance: SULBACTAM
     Indication: ENDOCARDITIS ENTEROCOCCAL
     Dosage: 3 G, TID
     Route: 042
  3. CEFTRIAXONE. [Suspect]
     Active Substance: CEFTRIAXONE
     Indication: EVIDENCE BASED TREATMENT
     Dosage: 2 G, QD
     Route: 042

REACTIONS (13)
  - Pyrexia [Fatal]
  - Nausea [Fatal]
  - Drug ineffective [Unknown]
  - Product use in unapproved indication [Unknown]
  - Petechiae [Fatal]
  - Haemoptysis [Fatal]
  - Concomitant disease aggravated [Unknown]
  - Endocarditis enterococcal [Fatal]
  - Product selection error [Unknown]
  - Pneumonia [Unknown]
  - Vomiting [Fatal]
  - Product prescribing error [Unknown]
  - Acute kidney injury [Unknown]

NARRATIVE: CASE EVENT DATE: 20181212
